FAERS Safety Report 5082224-6 (Version None)
Quarter: 2006Q3

REPORT INFORMATION
  Report Type: 
  Country: None (occurrence: None)
  Receive Date: 20060815
  Receipt Date: 20060815
  Transmission Date: 20061208
  Serious: Yes (Hospitalization)
  Sender: FDA-Public Use
  Company Number: None

PATIENT
  Age: 80 Year
  Sex: Male
  Weight: 66.7 kg

DRUGS (7)
  1. COUMADIN [Suspect]
     Dosage: 5MG HS, BY MOUTH
     Route: 048
     Dates: start: 20060402, end: 20060407
  2. CALCIUM ACETATE [Concomitant]
  3. METOPROLOL TARTRATE [Concomitant]
  4. INSULIN REG HUMAN 100 UNIT/ML NOVOLIN R [Concomitant]
  5. ASPIRIN [Concomitant]
  6. CALCITRIOL [Concomitant]
  7. LISINOPRIL [Concomitant]

REACTIONS (1)
  - HAEMORRHAGE [None]
